FAERS Safety Report 6286882-X (Version None)
Quarter: 2009Q3

REPORT INFORMATION
  Report Type: 
  Country: None (occurrence: None)
  Receive Date: 20090728
  Receipt Date: 20090723
  Transmission Date: 20100115
  Serious: Yes (Other)
  Sender: FDA-Public Use
  Company Number: US-MERCK-0906USA02294

PATIENT
  Age: 71 Year
  Sex: Female
  Weight: 95 kg

DRUGS (10)
  1. ZETIA [Suspect]
     Indication: BLOOD CHOLESTEROL INCREASED
     Route: 048
     Dates: start: 20041101, end: 20041110
  2. ALBUTEROL [Concomitant]
     Route: 065
  3. TENORMIN [Concomitant]
     Route: 065
  4. NEXIUM [Concomitant]
     Route: 065
  5. SINGULAIR [Concomitant]
     Route: 048
  6. ANACIN [Concomitant]
     Route: 065
  7. ADVAIR HFA [Concomitant]
     Route: 065
  8. VYTORIN [Suspect]
     Route: 048
  9. BENICAR [Concomitant]
     Route: 065
  10. PREVACID [Concomitant]
     Route: 065

REACTIONS (3)
  - LICHEN PLANUS [None]
  - PRURITUS [None]
  - URTICARIA [None]
